FAERS Safety Report 7498493-9 (Version None)
Quarter: 2011Q2

REPORT INFORMATION
  Report Type: 
  Country: None (occurrence: None)
  Receive Date: 20110516
  Receipt Date: 20110505
  Transmission Date: 20111010
  Serious: Yes (Hospitalization)
  Sender: FDA-Public Use
  Company Number: LEO-2011-00128

PATIENT
  Sex: Female
  Weight: 66 kg

DRUGS (10)
  1. TARCEVA [Concomitant]
  2. OXYCONTIN [Concomitant]
  3. OXYCODONE HCL [Concomitant]
  4. INNOHEP [Suspect]
     Indication: DEEP VEIN THROMBOSIS
     Dosage: 10000 IU (10000 IU,L IN 1 D),SUBCUTANEOUS
     Route: 058
     Dates: start: 20091101
  5. INNOHEP [Suspect]
     Indication: PULMONARY EMBOLISM
     Dosage: 10000 IU (10000 IU,L IN 1 D),SUBCUTANEOUS
     Route: 058
     Dates: start: 20091101
  6. AVASTIN(SIMVASTATIN) [Concomitant]
  7. TAXOL [Concomitant]
  8. NEURONTIN [Concomitant]
  9. NEXIUM [Concomitant]
  10. DOLIPRANE (PARACETAMOL) [Concomitant]

REACTIONS (6)
  - PULMONARY EMBOLISM [None]
  - OFF LABEL USE [None]
  - DISEASE RECURRENCE [None]
  - ASPARTATE AMINOTRANSFERASE INCREASED [None]
  - ALANINE AMINOTRANSFERASE INCREASED [None]
  - DEEP VEIN THROMBOSIS [None]
